FAERS Safety Report 9695037 (Version 2)
Quarter: 2013Q4

REPORT INFORMATION
  Report Type: Spontaneous
  Country: DE (occurrence: DE)
  Receive Date: 20131119
  Receipt Date: 20131128
  Transmission Date: 20140711
  Serious: Yes (Death, Hospitalization)
  Sender: FDA-Public Use
  Company Number: DE-JNJFOC-20131108114

PATIENT
  Age: 76 Year
  Sex: Male
  Weight: 95 kg

DRUGS (8)
  1. XARELTO [Suspect]
     Indication: PRODUCT USED FOR UNKNOWN INDICATION
     Route: 048
     Dates: start: 20120816
  2. SIMVASTATIN [Concomitant]
     Route: 065
  3. DELIX [Concomitant]
     Route: 065
  4. KALINORM [Concomitant]
     Route: 065
  5. NOVODIGAL [Concomitant]
     Route: 065
  6. BELOC ZOK [Concomitant]
     Route: 065
  7. TOREM [Concomitant]
     Route: 065
  8. ALDACTONE [Concomitant]
     Route: 065

REACTIONS (1)
  - Fall [Fatal]
